FAERS Safety Report 16409908 (Version 1)
Quarter: 2019Q2

REPORT INFORMATION
  Report Type: Report from Study
  Country: US (occurrence: US)
  Receive Date: 20190610
  Receipt Date: 20190610
  Transmission Date: 20190711
  Serious: Yes (Death, Other)
  Sender: FDA-Public Use
  Company Number: US-SA-2019SA152874

PATIENT

DRUGS (8)
  1. MELPHALAN. [Suspect]
     Active Substance: MELPHALAN
     Indication: ACUTE LYMPHOCYTIC LEUKAEMIA
     Dosage: 60 MG/M2, /DOSE ON DAYS ? 2 AND ? 1
  2. THIOTEPA. [Suspect]
     Active Substance: THIOTEPA
     Indication: ACUTE LYMPHOCYTIC LEUKAEMIA
     Dosage: 5 MG/KG, BID ON DAY -3
  3. MYCOPHENOLATE MOFETIL. [Concomitant]
     Active Substance: MYCOPHENOLATE MOFETIL
     Indication: PROPHYLAXIS AGAINST GRAFT VERSUS HOST DISEASE
     Dosage: 600 MG/M2, BID SATRTED ON DAY -22
  4. MUROMONAB-CD3 [Concomitant]
     Active Substance: MUROMONAB-CD3
     Indication: BONE MARROW CONDITIONING REGIMEN
     Dosage: FROM DAY -9 TO DAY +17
  5. RITUXIMAB. [Concomitant]
     Active Substance: RITUXIMAB
     Indication: ANTIVIRAL PROPHYLAXIS
     Dosage: 375 MG/M2
  6. GRANULOCYTE COLONY STIMULATING FACTOR [Concomitant]
     Active Substance: GRANULOCYTE COLONY-STIMULATING FACTOR NOS
     Dosage: 5 UG/KG ON DAY +6
  7. CLOFARABINE. [Suspect]
     Active Substance: CLOFARABINE
     Indication: ACUTE LYMPHOCYTIC LEUKAEMIA
     Dosage: 40 MG/M2, QD, FOR 5 DAYS
  8. CLOFARABINE. [Suspect]
     Active Substance: CLOFARABINE
     Dosage: 45 MG/M2, QD

REACTIONS (4)
  - Bacillus infection [Unknown]
  - Toxicity to various agents [Not Recovered/Not Resolved]
  - Venoocclusive liver disease [Not Recovered/Not Resolved]
  - Multiple organ dysfunction syndrome [Fatal]
